FAERS Safety Report 6638560-2 (Version None)
Quarter: 2010Q1

REPORT INFORMATION
  Report Type: 
  Country: None (occurrence: None)
  Receive Date: 20100317
  Receipt Date: 20100310
  Transmission Date: 20100710
  Serious: Yes (Other)
  Sender: FDA-Public Use
  Company Number: AU-NAPPMUNDI-GBR-2010-0006248

PATIENT
  Age: 67 Year
  Sex: Male

DRUGS (2)
  1. MORPHINE SULFATE [Suspect]
     Indication: ANALGESIC THERAPY
     Dosage: 240 MG, UNK
     Route: 058
  2. HALOPERIDOL [Concomitant]
     Route: 065

REACTIONS (1)
  - MYOCLONUS [None]
